FAERS Safety Report 9429113 (Version 2)
Quarter: 2013Q4

REPORT INFORMATION
  Report Type: Spontaneous
  Country: CA (occurrence: CA)
  Receive Date: 20130730
  Receipt Date: 20131029
  Transmission Date: 20140711
  Serious: Yes (Death, Hospitalization)
  Sender: FDA-Public Use
  Company Number: CA-ELI_LILLY_AND_COMPANY-CA201307009369

PATIENT
  Age: 61 Year
  Sex: Female

DRUGS (9)
  1. ZYPREXA [Suspect]
     Indication: DEMENTIA
     Dosage: 2.5 MG, BID
     Dates: start: 20090424
  2. ZYPREXA [Suspect]
     Dosage: 5 MG, BID
     Dates: start: 20090427
  3. ZYPREXA ZYDIS [Suspect]
     Indication: DEMENTIA
     Dosage: 5 MG, UNK
     Dates: start: 20090428
  4. ZYPREXA ZYDIS [Suspect]
     Indication: AGITATION
     Dosage: 2.5 MG, BID
     Route: 048
  5. ZYPREXA ZYDIS [Suspect]
     Dosage: 2.5 MG, PRN
  6. SEROQUEL [Concomitant]
     Indication: DEMENTIA
     Dosage: 12.5 MG, EACH EVENING
     Dates: start: 20090424
  7. SEROQUEL [Concomitant]
     Dosage: 12.5 MG, BID
     Dates: start: 20090315, end: 20090424
  8. ASA [Concomitant]
     Indication: PRODUCT USED FOR UNKNOWN INDICATION
     Dosage: 1 DF, UNKNOWN
  9. RAMIPRIL [Concomitant]
     Indication: PRODUCT USED FOR UNKNOWN INDICATION
     Dosage: 1 DF, UNKNOWN

REACTIONS (4)
  - Neuroleptic malignant syndrome [Fatal]
  - Rash [Unknown]
  - Incorrect dose administered [Not Recovered/Not Resolved]
  - Off label use [Not Recovered/Not Resolved]
